FAERS Safety Report 21330635 (Version 1)
Quarter: 2022Q3

REPORT INFORMATION
  Report Type: Spontaneous
  Country: US (occurrence: None)
  Receive Date: 20220913
  Receipt Date: 20220913
  Transmission Date: 20221027
  Serious: Yes (Hospitalization)
  Sender: FDA-Public Use
  Company Number: None

PATIENT
  Age: 79 Year
  Sex: Male
  Weight: 130.18 kg

DRUGS (1)
  1. HYDRALAZINE HYDROCHLORIDE [Suspect]
     Active Substance: HYDRALAZINE HYDROCHLORIDE
     Indication: Hypertension
     Dosage: 10 MG TID PO?
     Route: 048
     Dates: start: 20220211, end: 20220529

REACTIONS (8)
  - Blood pressure decreased [None]
  - Anxiety [None]
  - Dizziness [None]
  - Oedema peripheral [None]
  - Volume blood decreased [None]
  - Right ventricular systolic pressure increased [None]
  - Deep vein thrombosis [None]
  - Deep vein thrombosis [None]

NARRATIVE: CASE EVENT DATE: 20220529
